FAERS Safety Report 7932152-0 (Version None)
Quarter: 2011Q4

REPORT INFORMATION
  Report Type: 
  Country: None (occurrence: None)
  Receive Date: 20111121
  Receipt Date: 20111110
  Transmission Date: 20120403
  Serious: Yes (Hospitalization)
  Sender: FDA-Public Use
  Company Number: US-ASTRAZENECA-2011SE66799

PATIENT
  Age: 66 Year
  Sex: Female

DRUGS (1)
  1. SEROQUEL [Suspect]
     Indication: MENTAL DISORDER
     Route: 048

REACTIONS (6)
  - DRUG DOSE OMISSION [None]
  - MALAISE [None]
  - HEADACHE [None]
  - MENTAL DISORDER [None]
  - INSOMNIA [None]
  - RESTLESSNESS [None]
